FAERS Safety Report 4317492-9 (Version None)
Quarter: 2004Q1

REPORT INFORMATION
  Report Type: 
  Country: None (occurrence: None)
  Receive Date: 20040312
  Receipt Date: 20040301
  Transmission Date: 20041129
  Serious: Yes (Hospitalization)
  Sender: FDA-Public Use
  Company Number: HQWYE474302MAR04

PATIENT
  Sex: Male

DRUGS (3)
  1. RAPAMUNE [Suspect]
     Indication: IMMUNOSUPPRESSANT DRUG THERAPY
     Dosage: 2 MG 1X PER 1 DAY;  1 MG 1X PER 1 DAY
     Route: 048
  2. WYSOLONE (PREDNISOLONE) [Concomitant]
  3. MYCOPHENOLATE MOFETIL (MYCOPHENOLATE MOFETIL) [Concomitant]

REACTIONS (7)
  - ANAEMIA [None]
  - COAGULOPATHY [None]
  - DIARRHOEA [None]
  - LEUKOPENIA [None]
  - MALNUTRITION [None]
  - PYREXIA [None]
  - THROMBOCYTOPENIA [None]
